FAERS Safety Report 4950694-7 (Version None)
Quarter: 2006Q1

REPORT INFORMATION
  Report Type: 
  Country: None (occurrence: None)
  Receive Date: 20060321
  Receipt Date: 20060321
  Transmission Date: 20060701
  Serious: Yes (Hospitalization)
  Sender: FDA-Public Use
  Company Number: None

PATIENT
  Age: 46 Year
  Sex: Male
  Weight: 122.4712 kg

DRUGS (1)
  1. TRICOR [Suspect]
     Indication: BLOOD CHOLESTEROL INCREASED
     Dosage: 1  DAILY  PO
     Route: 048
     Dates: start: 20050301, end: 20050517

REACTIONS (2)
  - PHARMACEUTICAL PRODUCT COMPLAINT [None]
  - RHABDOMYOLYSIS [None]
